FAERS Safety Report 6518885-1 (Version None)
Quarter: 2009Q4

REPORT INFORMATION
  Report Type: 
  Country: None (occurrence: None)
  Receive Date: 20091228
  Receipt Date: 20091216
  Transmission Date: 20100525
  Serious: Yes (Other)
  Sender: FDA-Public Use
  Company Number: JP-PFIZER INC-2009303219

PATIENT
  Sex: Male
  Weight: 72.9 kg

DRUGS (6)
  1. NORVASC [Suspect]
     Indication: HYPERTENSION
     Dosage: 5 MG, DAILY
     Dates: start: 20060319, end: 20070807
  2. CARDENALIN [Suspect]
     Indication: HYPERTENSION
     Dosage: 6 MG,DAILY
     Dates: start: 20060403, end: 20070710
  3. CARVEDILOL [Suspect]
  4. CANDESARTAN CILEXETIL [Suspect]
  5. IMIDAPRIL [Suspect]
  6. AMITRIPTYLINE HYDROCHLORIDE [Concomitant]

REACTIONS (1)
  - GROWTH HORMONE DEFICIENCY [None]
